FAERS Safety Report 10349811 (Version 1)
Quarter: 2014Q3

REPORT INFORMATION
  Report Type: Spontaneous
  Country: US (occurrence: None)
  Receive Date: 20140728
  Receipt Date: 20140728
  Transmission Date: 20150326
  Serious: Yes (Disabling)
  Sender: FDA-Public Use
  Company Number: None

PATIENT
  Age: 22 Year
  Sex: Female
  Weight: 50.8 kg

DRUGS (1)
  1. LUSTRAL [Suspect]
     Active Substance: SERTRALINE HYDROCHLORIDE
     Indication: DEPRESSION
     Dosage: 30 ONCE DAILY TAKEN BY MOUTH
     Route: 048

REACTIONS (2)
  - Psychotic disorder [None]
  - Hallucinations, mixed [None]
